FAERS Safety Report 10255832 (Version 1)
Quarter: 2014Q2

REPORT INFORMATION
  Report Type: Spontaneous
  Country: US (occurrence: US)
  Receive Date: 20140624
  Receipt Date: 20140624
  Transmission Date: 20141212
  Serious: No
  Sender: FDA-Public Use
  Company Number: US-ZOGENIX, INC.-2012ZX000023

PATIENT
  Age: 31 Year
  Sex: Female
  Weight: 52.21 kg

DRUGS (3)
  1. SUMAVEL DOSEPRO [Suspect]
     Indication: MIGRAINE
     Dates: start: 201102, end: 20111225
  2. TOPAMAX [Concomitant]
     Indication: MIGRAINE
     Route: 048
     Dates: start: 201008
  3. CELEXA [Concomitant]
     Indication: DEPRESSION
     Route: 048
     Dates: start: 201008

REACTIONS (6)
  - Skin exfoliation [Not Recovered/Not Resolved]
  - Nausea [Recovered/Resolved]
  - Hypoaesthesia [Not Recovered/Not Resolved]
  - Feeling hot [Recovered/Resolved]
  - Dizziness [Recovered/Resolved]
  - Burning sensation [Recovered/Resolved]
